FAERS Safety Report 9206256 (Version 1)
Quarter: 2013Q1

REPORT INFORMATION
  Report Type: Spontaneous
  Country: US (occurrence: None)
  Receive Date: 20120709
  Receipt Date: 20120709
  Transmission Date: 20140127
  Serious: Yes (Other)
  Sender: FDA-Public Use
  Company Number: PHHY2011US68044

PATIENT
  Age: 75 Year
  Sex: Male

DRUGS (2)
  1. GLEEVEC (IMATINIB) UNKNOWN [Suspect]
     Indication: CHRONIC MYELOID LEUKAEMIA
     Route: 048
     Dates: start: 20110323, end: 20110817
  2. ALLOPURINOL [Concomitant]

REACTIONS (8)
  - Renal failure [None]
  - Hypoaesthesia [None]
  - Malaise [None]
  - Decreased appetite [None]
  - Asthenia [None]
  - Dysgeusia [None]
  - Rash [None]
  - Chills [None]
